FAERS Safety Report 10039109 (Version 2)
Quarter: 2014Q1

REPORT INFORMATION
  Report Type: Spontaneous
  Country: VE (occurrence: VE)
  Receive Date: 20140326
  Receipt Date: 20140327
  Transmission Date: 20141002
  Serious: Yes (Death, Hospitalization, Other)
  Sender: FDA-Public Use
  Company Number: PHHY2014VE034400

PATIENT
  Age: 28 Year
  Sex: Female

DRUGS (4)
  1. TOBI [Suspect]
     Indication: CYSTIC FIBROSIS
  2. IMIPENEM [Suspect]
     Indication: DYSPNOEA
  3. IMIPENEM [Suspect]
     Indication: HAEMOPTYSIS
  4. ANTIBIOTICS [Suspect]
     Indication: RESPIRATORY TRACT INFECTION
     Route: 042

REACTIONS (9)
  - Cystic fibrosis [Fatal]
  - Threatened labour [Unknown]
  - Infection [Recovered/Resolved]
  - Disease recurrence [Recovered/Resolved]
  - Premature labour [Unknown]
  - Maternal exposure during pregnancy [Unknown]
  - Exposure during breast feeding [Unknown]
  - Haemoptysis [Unknown]
  - Dyspnoea [Unknown]
